FAERS Safety Report 4952559-3 (Version None)
Quarter: 2006Q1

REPORT INFORMATION
  Report Type: 
  Country: None (occurrence: None)
  Receive Date: 20060323
  Receipt Date: 20051123
  Transmission Date: 20060701
  Serious: Yes (Hospitalization)
  Sender: FDA-Public Use
  Company Number: US-MERCK-0511USA04085

PATIENT
  Age: 70 Year
  Sex: Female
  Weight: 107 kg

DRUGS (10)
  1. VIOXX [Suspect]
     Indication: OSTEOARTHRITIS
     Route: 048
     Dates: start: 20000107, end: 20010525
  2. VIOXX [Suspect]
     Route: 048
     Dates: start: 20010530, end: 20030207
  3. VIOXX [Suspect]
     Indication: LUMBAR RADICULOPATHY
     Route: 048
     Dates: start: 20000107, end: 20010525
  4. VIOXX [Suspect]
     Route: 048
     Dates: start: 20010530, end: 20030207
  5. ULTRAM [Concomitant]
     Indication: PAIN
     Route: 065
     Dates: start: 20010525
  6. VERAPAMIL [Concomitant]
     Route: 065
     Dates: start: 19991117
  7. MAXZIDE [Concomitant]
     Indication: HYPERTENSION
     Route: 065
     Dates: start: 19991117
  8. MAXZIDE [Concomitant]
     Indication: OEDEMA
     Route: 065
     Dates: start: 19991117
  9. COUMADIN [Concomitant]
     Indication: ANTICOAGULANT THERAPY
     Route: 048
     Dates: start: 20010525
  10. CLARITIN [Concomitant]
     Indication: ANTIALLERGIC THERAPY
     Route: 048
     Dates: start: 20000929

REACTIONS (8)
  - ATRIAL FIBRILLATION [None]
  - BACK DISORDER [None]
  - BLOOD CHOLESTEROL INCREASED [None]
  - CHEST PAIN [None]
  - GASTROOESOPHAGEAL REFLUX DISEASE [None]
  - HAEMORRHAGE [None]
  - PULMONARY EMBOLISM [None]
  - WOUND INFECTION [None]
